FAERS Safety Report 7422418-5 (Version None)
Quarter: 2011Q2

REPORT INFORMATION
  Report Type: 
  Country: None (occurrence: None)
  Receive Date: 20110419
  Receipt Date: 20110408
  Transmission Date: 20111010
  Serious: No
  Sender: FDA-Public Use
  Company Number: US-BIOGENIDEC-2011BI013588

PATIENT
  Age: 33 Year
  Sex: Female

DRUGS (1)
  1. TYSABRI [Suspect]
     Indication: MULTIPLE SCLEROSIS
     Route: 042
     Dates: start: 20091102

REACTIONS (9)
  - PARAESTHESIA [None]
  - ANXIETY [None]
  - STRESS [None]
  - DRY MOUTH [None]
  - HEADACHE [None]
  - CHEST PAIN [None]
  - ARTHRALGIA [None]
  - NAUSEA [None]
  - MALAISE [None]
